FAERS Safety Report 5292159-1 (Version None)
Quarter: 2007Q2

REPORT INFORMATION
  Report Type: 
  Country: None (occurrence: None)
  Receive Date: 20070410
  Receipt Date: 20070402
  Transmission Date: 20071010
  Serious: Yes (Other)
  Sender: FDA-Public Use
  Company Number: GB-GLAXOSMITHKLINE-B0465366A

PATIENT
  Age: 70 Year
  Sex: Male
  Weight: 81 kg

DRUGS (5)
  1. ROSIGLITAZONE [Suspect]
     Indication: DIABETES MELLITUS
     Route: 048
     Dates: start: 20060405, end: 20060519
  2. ASPIRIN [Concomitant]
     Route: 048
     Dates: start: 19910519
  3. AMOXICILLIN + CLAVULANATE POTASSIUM [Concomitant]
     Dates: start: 20060403, end: 20060410
  4. GLICLAZIDE [Concomitant]
     Indication: DIABETES MELLITUS
     Route: 048
     Dates: start: 20060208, end: 20060405
  5. SIMVASTATIN [Concomitant]
     Indication: BLOOD CHOLESTEROL INCREASED
     Route: 048
     Dates: start: 20041207

REACTIONS (3)
  - CARDIAC FAILURE [None]
  - DYSPNOEA [None]
  - ORTHOPNOEA [None]
